FAERS Safety Report 22146194 (Version 1)
Quarter: 2023Q1

REPORT INFORMATION
  Report Type: Spontaneous
  Country: GB (occurrence: GB)
  Receive Date: 20230328
  Receipt Date: 20230328
  Transmission Date: 20230418
  Serious: Yes (Other)
  Sender: FDA-Public Use
  Company Number: None

PATIENT
  Age: 52 Year
  Sex: Male
  Weight: 114 kg

DRUGS (6)
  1. BUPRENORPHINE [Suspect]
     Active Substance: BUPRENORPHINE
     Indication: Pain
     Dosage: UNK
     Route: 065
  2. ASTRAZENECA COVID-19 VACCINE [Suspect]
     Active Substance: AZD-1222
     Indication: Product used for unknown indication
     Dosage: DOSE 2 (BOTH DOSES)
     Route: 065
     Dates: start: 20210423
  3. BUPRENORPHINE [Concomitant]
     Active Substance: BUPRENORPHINE
     Indication: Product used for unknown indication
     Dosage: UNK
     Route: 065
  4. TOPIRAMATE [Concomitant]
     Active Substance: TOPIRAMATE
     Indication: Conversion disorder
     Dosage: UNK
     Route: 065
     Dates: start: 20200601
  5. VENLAFAXINE [Concomitant]
     Active Substance: VENLAFAXINE HYDROCHLORIDE
     Indication: Craniocerebral injury
     Dosage: UNK
     Route: 065
     Dates: start: 20151130
  6. ZOPICLONE [Concomitant]
     Active Substance: ZOPICLONE
     Indication: Craniocerebral injury
     Dosage: UNK
     Route: 065
     Dates: start: 20160901, end: 20210407

REACTIONS (3)
  - Pain [Unknown]
  - Rubber sensitivity [Recovered/Resolved]
  - Swelling [Recovered/Resolved]

NARRATIVE: CASE EVENT DATE: 20210424
